FAERS Safety Report 13675678 (Version 1)
Quarter: 2017Q2

REPORT INFORMATION
  Report Type: Spontaneous
  Country: GR (occurrence: GR)
  Receive Date: 20170621
  Receipt Date: 20170621
  Transmission Date: 20170830
  Serious: Yes (Other)
  Sender: FDA-Public Use
  Company Number: PHHY2017GR089260

PATIENT
  Age: 65 Year
  Sex: Male

DRUGS (2)
  1. STALEVO [Suspect]
     Active Substance: CARBIDOPA\ENTACAPONE\LEVODOPA
     Indication: PARKINSON^S DISEASE
     Route: 065
  2. MIRAPEXIN [Suspect]
     Active Substance: PRAMIPEXOLE
     Indication: PARKINSON^S DISEASE
     Route: 065

REACTIONS (8)
  - Gait disturbance [Unknown]
  - Weight decreased [Unknown]
  - Hyperkinesia [Unknown]
  - Motor dysfunction [Unknown]
  - Asthenia [Unknown]
  - Fatigue [Unknown]
  - Huntington^s disease [Unknown]
  - Speech disorder [Unknown]
